FAERS Safety Report 4726523-3 (Version None)
Quarter: 2005Q3

REPORT INFORMATION
  Report Type: 
  Country: None (occurrence: None)
  Receive Date: 20050725
  Receipt Date: 20050308
  Transmission Date: 20060218
  Serious: No
  Sender: FDA-Public Use
  Company Number: USA050393014

PATIENT
  Age: 28 Year
  Sex: Female

DRUGS (2)
  1. STRATTERA [Suspect]
     Dosage: 40 MG DAY
  2. ZOLOFT [Concomitant]

REACTIONS (3)
  - ABNORMAL BEHAVIOUR [None]
  - DRUG WITHDRAWAL SYNDROME [None]
  - IRRITABILITY [None]
